FAERS Safety Report 7488735-8 (Version None)
Quarter: 2011Q2

REPORT INFORMATION
  Report Type: 
  Country: None (occurrence: None)
  Receive Date: 20110511
  Receipt Date: 20110502
  Transmission Date: 20111010
  Serious: Yes (Hospitalization)
  Sender: FDA-Public Use
  Company Number: 2010AC000110

PATIENT
  Age: 49 Year
  Sex: Male

DRUGS (13)
  1. HYDROCODONE BITARTRATE [Concomitant]
  2. OXYCODONE HCL [Concomitant]
  3. CRESTOR [Concomitant]
  4. XANAX [Concomitant]
  5. ASPIRIN [Concomitant]
  6. LORCET-HD [Concomitant]
  7. TRICOR [Concomitant]
  8. SOTALOL HCL [Concomitant]
  9. LOVAZA [Concomitant]
  10. DIGOXIN [Suspect]
     Indication: ATRIAL FLUTTER
     Dosage: 0.250 MG; QD; PO
     Route: 048
     Dates: start: 19911001, end: 20080704
  11. AMBIEN CR [Concomitant]
  12. LOVAZA [Concomitant]
  13. SOMA [Concomitant]

REACTIONS (45)
  - BLOOD CHOLESTEROL INCREASED [None]
  - PHARYNGITIS [None]
  - CLAVICLE FRACTURE [None]
  - TOXICITY TO VARIOUS AGENTS [None]
  - SYNCOPE [None]
  - ECONOMIC PROBLEM [None]
  - VISUAL IMPAIRMENT [None]
  - HEART RATE ABNORMAL [None]
  - THINKING ABNORMAL [None]
  - MALAISE [None]
  - SUPRAVENTRICULAR TACHYCARDIA [None]
  - RIB FRACTURE [None]
  - CEREBRAL ISCHAEMIA [None]
  - FALL [None]
  - ARTHRALGIA [None]
  - INFLUENZA LIKE ILLNESS [None]
  - DIZZINESS [None]
  - ATRIOVENTRICULAR BLOCK FIRST DEGREE [None]
  - ACQUIRED DIAPHRAGMATIC EVENTRATION [None]
  - TRICUSPID VALVE INCOMPETENCE [None]
  - MUSCLE ATROPHY [None]
  - ACTIVITIES OF DAILY LIVING IMPAIRED [None]
  - ANXIETY [None]
  - PELVIC FRACTURE [None]
  - PLEURAL EFFUSION [None]
  - LIMB INJURY [None]
  - PARALYSIS [None]
  - DECREASED APPETITE [None]
  - BLOOD TRIGLYCERIDES INCREASED [None]
  - CONFUSIONAL STATE [None]
  - VENTRICULAR EXTRASYSTOLES [None]
  - DRUG SCREEN POSITIVE [None]
  - SLEEP DISORDER [None]
  - MULTIPLE INJURIES [None]
  - SURGERY [None]
  - NAUSEA [None]
  - VOMITING [None]
  - HYPOTENSION [None]
  - IMPAIRED DRIVING ABILITY [None]
  - CHEST PAIN [None]
  - POLLAKIURIA [None]
  - DIARRHOEA [None]
  - ROAD TRAFFIC ACCIDENT [None]
  - BACK PAIN [None]
  - HEAD INJURY [None]
